FAERS Safety Report 10982461 (Version 2)
Quarter: 2015Q2

REPORT INFORMATION
  Report Type: Spontaneous
  Country: US (occurrence: US)
  Receive Date: 20150403
  Receipt Date: 20150420
  Transmission Date: 20150821
  Serious: No
  Sender: FDA-Public Use
  Company Number: US-PFIZER INC-2015112317

PATIENT
  Age: 49 Year
  Sex: Female
  Weight: 113 kg

DRUGS (2)
  1. LYRICA [Suspect]
     Active Substance: PREGABALIN
     Indication: FACIAL NEURALGIA
     Dosage: 100 MG, 3X/DAY
     Route: 048
     Dates: start: 2012, end: 20150318
  2. LYRICA [Suspect]
     Active Substance: PREGABALIN
     Indication: NEURALGIA
     Dosage: 150 MG, 3X/DAY
     Dates: start: 20150319

REACTIONS (2)
  - Condition aggravated [Not Recovered/Not Resolved]
  - Facial neuralgia [Not Recovered/Not Resolved]
